FAERS Safety Report 15886105 (Version 3)
Quarter: 2019Q2

REPORT INFORMATION
  Report Type: Report from Study
  Country: AU (occurrence: AU)
  Receive Date: 20190129
  Receipt Date: 20190422
  Transmission Date: 20190711
  Serious: Yes (Death, Hospitalization)
  Sender: FDA-Public Use
  Company Number: PHHY2019AU015826

PATIENT
  Age: 76 Year
  Sex: Male

DRUGS (1)
  1. SANDOSTATIN LAR DEPOT [Suspect]
     Active Substance: OCTREOTIDE ACETATE
     Indication: ACROMEGALY
     Dosage: 20 MG, EVERY 6 WEEKS
     Route: 030

REACTIONS (2)
  - Inappropriate schedule of product administration [Unknown]
  - Ill-defined disorder [Fatal]

NARRATIVE: CASE EVENT DATE: 201811
